FAERS Safety Report 9415193 (Version 2)
Quarter: 2013Q3

REPORT INFORMATION
  Report Type: Spontaneous
  Country: ES (occurrence: ES)
  Receive Date: 20130723
  Receipt Date: 20130827
  Transmission Date: 20140515
  Serious: Yes (Death, Hospitalization)
  Sender: FDA-Public Use
  Company Number: ES-ROCHE-1251607

PATIENT
  Age: 65 Year
  Sex: Male
  Weight: 75 kg

DRUGS (5)
  1. ROACTEMRA [Suspect]
     Indication: RHEUMATOID ARTHRITIS
     Dosage: 8 MG/KG
     Route: 065
     Dates: start: 20130614
  2. HUMIRA [Concomitant]
     Indication: RHEUMATOID ARTHRITIS
     Dosage: RESTARTED ON 31/MAY/2013. 40
     Route: 065
  3. DUODART [Concomitant]
  4. XERISTAR [Concomitant]
  5. OMEPRAZOL [Concomitant]

REACTIONS (2)
  - Myocardial infarction [Fatal]
  - Dyspnoea [Unknown]
